FAERS Safety Report 6553432-X (Version None)
Quarter: 2010Q1

REPORT INFORMATION
  Report Type: 
  Country: None (occurrence: None)
  Receive Date: 20100127
  Receipt Date: 20091203
  Transmission Date: 20100710
  Serious: No
  Sender: FDA-Public Use
  Company Number: A0833198A

PATIENT
  Age: 71 Year
  Sex: Female

DRUGS (4)
  1. SUMATRIPTAN SUCCINATE [Suspect]
     Indication: MIGRAINE
     Dosage: 6MG AS REQUIRED
     Route: 058
     Dates: start: 20091111, end: 20091203
  2. SYNTHROID [Concomitant]
  3. HORMONE REPLACEMENT [Concomitant]
  4. LASIX [Concomitant]

REACTIONS (4)
  - HYPERACUSIS [None]
  - NAUSEA [None]
  - PAIN [None]
  - PHOTOSENSITIVITY REACTION [None]
